FAERS Safety Report 19789082 (Version 1)
Quarter: 2021Q3

REPORT INFORMATION
  Report Type: Spontaneous
  Country: FR (occurrence: FR)
  Receive Date: 20210904
  Receipt Date: 20210904
  Transmission Date: 20211014
  Serious: Yes (Death)
  Sender: FDA-Public Use
  Company Number: FR-ACCORD-237325

PATIENT
  Age: 64 Year
  Sex: Female
  Weight: 93.2 kg

DRUGS (10)
  1. SPIRONOLACTONE. [Suspect]
     Active Substance: SPIRONOLACTONE
     Indication: HYPERTENSION
     Route: 048
     Dates: start: 20210609, end: 20210714
  2. FUROSEMIDE ARROW [Suspect]
     Active Substance: FUROSEMIDE
     Indication: HYPERTENSION
     Dosage: 20 MG, SCORED TABLET
     Route: 048
     Dates: start: 20210609, end: 20210714
  3. SPASFON LYOC [Suspect]
     Active Substance: PHLOROGLUCINOL
     Indication: PAIN
     Dosage: 80 MG ORAL LYOPHILISATE
     Route: 048
     Dates: start: 202106, end: 20210715
  4. LOVENOX [Suspect]
     Active Substance: ENOXAPARIN SODIUM
     Indication: PROPHYLAXIS
     Dosage: 4000 IU ANTI?XA / 0.4 ML SOLUTION FOR INJECTION IN PRE?FILLED SYRINGE
     Dates: start: 20210531, end: 20210621
  5. TRIMEBUTINE [Suspect]
     Active Substance: TRIMEBUTINE
     Indication: PAIN
     Route: 048
     Dates: start: 202106, end: 20210715
  6. PRINCI B [CYANOCOBALAMIN/PYRIDOXINE HYDROCHLORIDE/THIAMINE MONONITRATE] [Suspect]
     Active Substance: CYANOCOBALAMIN\PYRIDOXINE HYDROCHLORIDE\THIAMINE
     Indication: HYPOVITAMINOSIS
     Route: 048
     Dates: start: 20210617, end: 20210715
  7. PANTOPRAZOLE MYLAN [Suspect]
     Active Substance: PANTOPRAZOLE SODIUM
     Indication: PRODUCT USED FOR UNKNOWN INDICATION
     Dosage: 40 MG GASTRO?RESISTANT TABLETS
     Route: 048
     Dates: start: 20210609, end: 20210715
  8. DIFFU K [Suspect]
     Active Substance: POTASSIUM CHLORIDE
     Indication: HYPOKALAEMIA
     Route: 048
     Dates: start: 20210531, end: 20210606
  9. DUPHALAC [Suspect]
     Active Substance: LACTULOSE
     Indication: ENCEPHALOPATHY
     Route: 048
     Dates: start: 20210601, end: 20210714
  10. ACUPAN [Suspect]
     Active Substance: NEFOPAM HYDROCHLORIDE
     Indication: PAIN
     Route: 048
     Dates: start: 202106, end: 20210715

REACTIONS (1)
  - Drug reaction with eosinophilia and systemic symptoms [Fatal]

NARRATIVE: CASE EVENT DATE: 20210701
